FAERS Safety Report 5280158-5 (Version None)
Quarter: 2007Q1

REPORT INFORMATION
  Report Type: 
  Country: None (occurrence: None)
  Receive Date: 20061215
  Receipt Date: 20060308
  Transmission Date: 20070707
  Serious: Yes (Other)
  Sender: FDA-Public Use
  Company Number: HQWYE303213MAR06

PATIENT
  Age: 51 Year
  Sex: Female
  Weight: 65.83 kg

DRUGS (8)
  1. EFFEXOR XR [Suspect]
     Indication: DEPRESSION
     Dosage: SEE IMAGE
     Route: 048
     Dates: start: 20041101, end: 20060227
  2. EFFEXOR XR [Suspect]
     Indication: DEPRESSION
     Dosage: SEE IMAGE
     Route: 048
     Dates: start: 20060228
  3. LOPRESSOR [Concomitant]
  4. XANAX [Concomitant]
  5. PLAVIX [Concomitant]
  6. LEXAPRO [Concomitant]
  7. ZYPREXA [Concomitant]
  8. IMITREX [Concomitant]

REACTIONS (1)
  - CONVULSION [None]
